FAERS Safety Report 20409807 (Version 1)
Quarter: 2022Q1

REPORT INFORMATION
  Report Type: Spontaneous
  Country: US (occurrence: US)
  Receive Date: 20220201
  Receipt Date: 20220201
  Transmission Date: 20220423
  Serious: No
  Sender: FDA-Public Use
  Company Number: US-SAREPTA THERAPEUTICS INC.-SRP2022-001947

PATIENT
  Age: 5 Year
  Sex: Male
  Weight: 16.3 kg

DRUGS (2)
  1. AMONDYS 45 [Suspect]
     Active Substance: CASIMERSEN
     Indication: Duchenne muscular dystrophy
     Dosage: 450 MILLIGRAM, WEEKLY
     Route: 042
     Dates: start: 20211215
  2. AMONDYS 45 [Suspect]
     Active Substance: CASIMERSEN
     Dosage: 450 MILLIGRAM, WEEKLY
     Route: 042
     Dates: start: 20220104

REACTIONS (1)
  - Poor venous access [Recovered/Resolved]

NARRATIVE: CASE EVENT DATE: 20211228
